FAERS Safety Report 25751016 (Version 1)
Quarter: 2025Q3

REPORT INFORMATION
  Report Type: Spontaneous
  Country: US (occurrence: None)
  Receive Date: 20250830
  Receipt Date: 20250830
  Transmission Date: 20251021
  Serious: Yes (Other)
  Sender: FDA-CTU
  Company Number: None

PATIENT
  Age: 44 Year
  Sex: Female

DRUGS (1)
  1. ZEPBOUND [Suspect]
     Active Substance: TIRZEPATIDE
     Indication: Weight decreased
     Route: 058
     Dates: start: 20250818, end: 20250818

REACTIONS (5)
  - Diarrhoea [None]
  - Depression [None]
  - Thinking abnormal [None]
  - Hypophagia [None]
  - Vomiting [None]

NARRATIVE: CASE EVENT DATE: 20250820
